FAERS Safety Report 9630603 (Version 1)
Quarter: 2013Q4

REPORT INFORMATION
  Report Type: Spontaneous
  Country: US (occurrence: None)
  Receive Date: 20131016
  Receipt Date: 20131016
  Transmission Date: 20140711
  Serious: Yes (Death)
  Sender: FDA-Public Use
  Company Number: UTC-038821

PATIENT
  Age: 82 Year
  Sex: Female
  Weight: 67.3 kg

DRUGS (1)
  1. REMODULIN (10 MILLIGRAM/MILLILITERS, INJECTION FOR INFUSION) (TREPROSTINIL SODIUM) [Suspect]
     Indication: PULMONARY ARTERIAL HYPERTENSION
     Dosage: 168.48 UG/KG (0.117 UG/KG, 1 IN 1 MIN), SUBCUTANEOUS
     Dates: start: 20110727

REACTIONS (1)
  - Death [None]
